FAERS Safety Report 8533677-X (Version None)
Quarter: 2012Q3

REPORT INFORMATION
  Report Type: 
  Country: None (occurrence: None)
  Receive Date: 20120724
  Receipt Date: 20120723
  Transmission Date: 20120928
  Serious: No
  Sender: FDA-Public Use
  Company Number: US-PFIZER INC-2012125471

PATIENT
  Sex: Female

DRUGS (2)
  1. DETROL LA [Suspect]
     Dosage: 2 MG, UNK
     Dates: start: 20120519
  2. ENABLEX [Suspect]
     Dosage: UNK

REACTIONS (1)
  - FATIGUE [None]
